FAERS Safety Report 9839089 (Version 1)
Quarter: 2014Q1

REPORT INFORMATION
  Report Type: Report from Study
  Country: ES (occurrence: ES)
  Receive Date: 20140123
  Receipt Date: 20140123
  Transmission Date: 20141002
  Serious: Yes (Hospitalization)
  Sender: FDA-Public Use
  Company Number: ES-MERCK-1401ESP008310

PATIENT
  Age: 66 Year
  Sex: Female

DRUGS (3)
  1. PEGINTRON [Suspect]
     Indication: CHRONIC HEPATITIS C
     Dosage: 1 INJECTION OF 100 MCG
     Route: 058
     Dates: start: 20130913
  2. RIBAVIRIN [Suspect]
     Indication: CHRONIC HEPATITIS C
     Dosage: 1 TABLET OF 200 MG EVERY 12H
     Route: 048
     Dates: start: 20130913
  3. TELAPREVIR [Suspect]
     Indication: CHRONIC HEPATITIS C
     Dosage: 3 TABLETS OF 375 MG EVERY 12H
     Route: 048
     Dates: start: 20130913, end: 20131209

REACTIONS (4)
  - Leukopenia [Recovered/Resolved]
  - Anaemia [Recovered/Resolved]
  - Pyrexia [Recovered/Resolved]
  - Erythema [Recovered/Resolved]
